FAERS Safety Report 24651337 (Version 1)
Quarter: 2024Q4

REPORT INFORMATION
  Report Type: Spontaneous
  Country: DE (occurrence: DE)
  Receive Date: 20241122
  Receipt Date: 20241122
  Transmission Date: 20250114
  Serious: Yes (Other)
  Sender: ACCORD
  Company Number: DE-EMA-DD-20241021-7482647-174719

PATIENT
  Age: 67 Year
  Sex: Male

DRUGS (10)
  1. CAPECITABINE [Suspect]
     Active Substance: CAPECITABINE
     Indication: Colorectal cancer metastatic
  2. BEVACIZUMAB [Suspect]
     Active Substance: BEVACIZUMAB
     Indication: Colorectal cancer metastatic
  3. PANITUMUMAB [Suspect]
     Active Substance: PANITUMUMAB
     Indication: Colorectal cancer metastatic
  4. ENCORAFENIB [Concomitant]
     Active Substance: ENCORAFENIB
     Indication: Metastases to lung
     Dosage: UNK
  5. CETUXIMAB [Concomitant]
     Active Substance: CETUXIMAB
     Indication: Colorectal cancer metastatic
     Dosage: UNK
  6. BINIMETINIB [Concomitant]
     Active Substance: BINIMETINIB
     Indication: Colorectal cancer metastatic
     Dosage: UNK
  7. FLUOROURACIL [Concomitant]
     Active Substance: FLUOROURACIL
     Indication: Colorectal cancer metastatic
  8. LEUCOVORIN [Concomitant]
     Active Substance: LEUCOVORIN\LEUCOVORIN CALCIUM
     Indication: Colorectal cancer metastatic
  9. IRINOTECAN [Concomitant]
     Active Substance: IRINOTECAN
  10. OXALIPLATIN [Concomitant]
     Active Substance: OXALIPLATIN
     Indication: Colorectal cancer metastatic

REACTIONS (4)
  - Skin toxicity [Unknown]
  - Metastases to lung [Unknown]
  - Metastases to central nervous system [Unknown]
  - Disease progression [Unknown]
